FAERS Safety Report 7777212-2 (Version None)
Quarter: 2011Q3

REPORT INFORMATION
  Report Type: 
  Country: None (occurrence: None)
  Receive Date: 20110922
  Receipt Date: 20110919
  Transmission Date: 20111222
  Serious: Yes (Death)
  Sender: FDA-Public Use
  Company Number: 2011SP044256

PATIENT

DRUGS (1)
  1. TEMODAL [Suspect]
     Indication: NEOPLASM MALIGNANT
     Dosage: ;PO
     Route: 048

REACTIONS (1)
  - SEPTIC SHOCK [None]
